FAERS Safety Report 5257035-9 (Version None)
Quarter: 2007Q1

REPORT INFORMATION
  Report Type: 
  Country: None (occurrence: None)
  Receive Date: 20070307
  Receipt Date: 20070221
  Transmission Date: 20070707
  Serious: Yes (Hospitalization)
  Sender: FDA-Public Use
  Company Number: PHBS2007JP03542

PATIENT
  Age: 24 Year
  Sex: Female

DRUGS (1)
  1. TEGRETOL [Suspect]
     Indication: EPILEPSY
     Route: 048

REACTIONS (2)
  - DRUG ERUPTION [None]
  - EXTRAPYRAMIDAL DISORDER [None]
